FAERS Safety Report 25302996 (Version 1)
Quarter: 2025Q2

REPORT INFORMATION
  Report Type: Report from Study
  Country: US (occurrence: US)
  Receive Date: 20250512
  Receipt Date: 20250512
  Transmission Date: 20250716
  Serious: Yes (Other)
  Sender: ABBVIE
  Company Number: US-ABBVIE-6040323

PATIENT
  Age: 80 Year
  Sex: Male

DRUGS (1)
  1. LUPRON [Suspect]
     Active Substance: LEUPROLIDE ACETATE
     Indication: Product used for unknown indication
     Route: 065

REACTIONS (6)
  - Ureteric obstruction [Recovering/Resolving]
  - Pain [Unknown]
  - Constipation [Unknown]
  - Diarrhoea [Unknown]
  - Lymphoma [Unknown]
  - Prostate cancer [Unknown]

NARRATIVE: CASE EVENT DATE: 20250101
